FAERS Safety Report 20535512 (Version 1)
Quarter: 2022Q1

REPORT INFORMATION
  Report Type: Spontaneous
  Country: CN (occurrence: CN)
  Receive Date: 20220302
  Receipt Date: 20220302
  Transmission Date: 20220423
  Serious: Yes (Hospitalization, Other)
  Sender: FDA-Public Use
  Company Number: CN-BAYER-2021-200920

PATIENT
  Age: 82 Year
  Sex: Male
  Weight: 72 kg

DRUGS (2)
  1. XARELTO [Interacting]
     Active Substance: RIVAROXABAN
     Indication: Anticoagulant therapy
     Dosage: 10 MG, QD
     Route: 048
     Dates: start: 20200906, end: 20200907
  2. MOBIC [Suspect]
     Active Substance: MELOXICAM
     Indication: Postoperative analgesia
     Dosage: 7.5 MG, QD
     Route: 048
     Dates: start: 20200906, end: 20200907

REACTIONS (5)
  - Gastric mucosal lesion [Recovering/Resolving]
  - Peptic ulcer haemorrhage [Recovering/Resolving]
  - Gastric haemorrhage [Recovering/Resolving]
  - Blood loss anaemia [Recovering/Resolving]
  - Labelled drug-drug interaction medication error [Unknown]

NARRATIVE: CASE EVENT DATE: 20200907
